FAERS Safety Report 5959047-6 (Version None)
Quarter: 2008Q4

REPORT INFORMATION
  Report Type: 
  Country: None (occurrence: None)
  Receive Date: 20081120
  Receipt Date: 20081111
  Transmission Date: 20090506
  Serious: Yes (Disabling)
  Sender: FDA-Public Use
  Company Number: US-WYE-H05996108

PATIENT
  Age: 41 Year
  Sex: Male

DRUGS (4)
  1. EFFEXOR XR [Suspect]
     Indication: DEPRESSED MOOD
     Route: 048
     Dates: start: 20020101, end: 20080101
  2. EFFEXOR XR [Suspect]
     Indication: ANXIETY
     Route: 048
     Dates: start: 20080101, end: 20080101
  3. EFFEXOR XR [Suspect]
     Route: 048
     Dates: start: 20080101, end: 20080901
  4. ETHANOL [Concomitant]
     Dosage: DRANK 5-6 BEERS DAILY
     Route: 048

REACTIONS (7)
  - APATHY [None]
  - DIZZINESS [None]
  - DRUG WITHDRAWAL SYNDROME [None]
  - FEELING HOT [None]
  - GENERAL PHYSICAL CONDITION ABNORMAL [None]
  - INSOMNIA [None]
  - IRRITABILITY [None]
